FAERS Safety Report 7335220-X (Version None)
Quarter: 2011Q1

REPORT INFORMATION
  Report Type: 
  Country: None (occurrence: None)
  Receive Date: 20110302
  Receipt Date: 20110302
  Transmission Date: 20110831
  Serious: Yes (Hospitalization, Other)
  Sender: FDA-Public Use
  Company Number: None

PATIENT
  Sex: Male
  Weight: 88.4514 kg

DRUGS (1)
  1. NIACIN [Suspect]
     Indication: BLOOD CHOLESTEROL INCREASED
     Dosage: 1 TAB DAILY
     Dates: start: 20101124, end: 20110128

REACTIONS (4)
  - ABDOMINAL DISCOMFORT [None]
  - HEART RATE IRREGULAR [None]
  - DYSPEPSIA [None]
  - ATRIAL FIBRILLATION [None]
